FAERS Safety Report 12758252 (Version 1)
Quarter: 2016Q3

REPORT INFORMATION
  Report Type: Spontaneous
  Country: BR (occurrence: BR)
  Receive Date: 20160919
  Receipt Date: 20160919
  Transmission Date: 20161109
  Serious: Yes (Hospitalization, Other)
  Sender: FDA-Public Use
  Company Number: BR-GLAXOSMITHKLINE-BR2016GSK135232

PATIENT
  Sex: Male
  Weight: 95 kg

DRUGS (8)
  1. SIMVASTATIN. [Concomitant]
     Active Substance: SIMVASTATIN
     Indication: DIABETES PROPHYLAXIS
     Dosage: 1 UNK, QD
     Route: 048
  2. ANADOR (DIPYRONE) [Concomitant]
     Indication: PAIN
     Dosage: 1 UNK, QD
     Route: 048
     Dates: start: 2012
  3. METFORMIN HYDROCHLORIDE. [Concomitant]
     Active Substance: METFORMIN HYDROCHLORIDE
     Indication: DIABETES PROPHYLAXIS
     Dosage: 1 UNK, QD
     Route: 048
  4. RIVOTRIL [Concomitant]
     Active Substance: CLONAZEPAM
     Indication: ANXIETY
  5. SERETIDE [Suspect]
     Active Substance: FLUTICASONE PROPIONATE\SALMETEROL XINAFOATE
     Indication: CHRONIC OBSTRUCTIVE PULMONARY DISEASE
     Dosage: 1 PUFF(S), BID
     Route: 055
     Dates: start: 2013
  6. HIDROCLOROTIAZIDA [Concomitant]
     Active Substance: HYDROCHLOROTHIAZIDE
     Indication: DIURETIC THERAPY
     Dosage: 25 MG, QD
     Route: 048
     Dates: start: 2005
  7. NOVALGINA (DIPYRONE) [Concomitant]
     Indication: PAIN
     Dosage: 1 UNK, QD
     Route: 048
     Dates: start: 2012
  8. LOSARTAN. [Concomitant]
     Active Substance: LOSARTAN
     Dosage: UNK
     Dates: start: 2005

REACTIONS (18)
  - Lymphoma [Recovered/Resolved]
  - Cough [Unknown]
  - Catarrh [Unknown]
  - Dyspnoea [Unknown]
  - Arrhythmia [Unknown]
  - Dizziness [Unknown]
  - Hypoxia [Unknown]
  - Choking sensation [Unknown]
  - Tendon rupture [Unknown]
  - Apnoea [Not Recovered/Not Resolved]
  - Visual impairment [Unknown]
  - Throat irritation [Unknown]
  - Blood pressure increased [Unknown]
  - Brain neoplasm benign [Unknown]
  - Medication error [Unknown]
  - Snoring [Unknown]
  - Headache [Unknown]
  - Ocular hyperaemia [Unknown]
